FAERS Safety Report 7367264-6 (Version None)
Quarter: 2011Q1

REPORT INFORMATION
  Report Type: 
  Country: None (occurrence: None)
  Receive Date: 20110322
  Receipt Date: 20110311
  Transmission Date: 20110831
  Serious: Yes (Other)
  Sender: FDA-Public Use
  Company Number: US-PFIZER INC-2006031822

PATIENT
  Sex: Male

DRUGS (10)
  1. PHENOBARBITAL [Suspect]
     Indication: ILL-DEFINED DISORDER
     Dosage: UNK
  2. ALCOHOL [Suspect]
     Indication: ILL-DEFINED DISORDER
     Dosage: UNK
  3. ZOLOFT [Suspect]
     Indication: ILL-DEFINED DISORDER
     Dosage: UNK
     Dates: start: 20040901
  4. NEURONTIN [Suspect]
     Dosage: 300 MG, 4X/DAY
     Dates: start: 20040410
  5. GABAPENTIN [Suspect]
     Indication: ILL-DEFINED DISORDER
     Dosage: UNK
  6. NEURONTIN [Suspect]
     Dosage: 100 MG, 2X/DAY
     Dates: start: 20040409
  7. NEURONTIN [Suspect]
     Dosage: 300 MG, UNK
     Dates: start: 20040412
  8. RISPERDAL [Suspect]
     Indication: ILL-DEFINED DISORDER
     Dosage: UNK
     Dates: start: 20040901
  9. LOTREL [Concomitant]
     Dosage: UNK
  10. NEURONTIN [Suspect]
     Indication: ILL-DEFINED DISORDER
     Dosage: 100 MG, 3X/DAY
     Dates: start: 20040407

REACTIONS (3)
  - DEPRESSION [None]
  - SUICIDAL IDEATION [None]
  - ALCOHOL POISONING [None]
